FAERS Safety Report 4431914-4 (Version None)
Quarter: 2004Q3

REPORT INFORMATION
  Report Type: 
  Country: None (occurrence: None)
  Receive Date: 20040819
  Receipt Date: 20040811
  Transmission Date: 20050211
  Serious: Yes (Other)
  Sender: FDA-Public Use
  Company Number: AR-2004-028180

PATIENT
  Age: 45 Year
  Sex: Female
  Weight: 75 kg

DRUGS (1)
  1. MIRENA [Suspect]
     Indication: CONTRACEPTION
     Dosage: 20 UG/DAY, CONT. INTRA-UTERINE
     Route: 015
     Dates: start: 20030201, end: 20040702

REACTIONS (2)
  - BREAST CANCER FEMALE [None]
  - METASTASES TO LYMPH NODES [None]
